FAERS Safety Report 6536434-9 (Version None)
Quarter: 2010Q1

REPORT INFORMATION
  Report Type: 
  Country: None (occurrence: None)
  Receive Date: 20100113
  Receipt Date: 20100105
  Transmission Date: 20100710
  Serious: Yes (Life-Threatening, Hospitalization)
  Sender: FDA-Public Use
  Company Number: GXKR2009GB12351

PATIENT
  Age: 17 Year
  Sex: Male

DRUGS (7)
  1. LORAZEPAM (NGX) [Suspect]
     Indication: AGITATION
     Dosage: UP TO 6 MG/DAY
     Route: 048
  2. LORAZEPAM (NGX) [Suspect]
     Indication: ANXIETY
     Dosage: 1.5 MG/DAY
     Route: 048
     Dates: end: 20090625
  3. DEPAKOTE [Suspect]
     Indication: BIPOLAR DISORDER
     Dosage: 1250 MG, QD
     Route: 048
     Dates: start: 20040101, end: 20090624
  4. DEPAKOTE [Suspect]
     Indication: MANIA
  5. FLUOXETINE [Concomitant]
  6. RISPERIDONE [Concomitant]
     Indication: AGITATION
     Dosage: 0.75 MG, UNK
     Route: 048
  7. RISPERIDONE [Concomitant]
     Indication: ANXIETY

REACTIONS (11)
  - AGITATION [None]
  - APNOEA [None]
  - CARDIAC ARREST [None]
  - CONFUSIONAL STATE [None]
  - DRUG WITHDRAWAL CONVULSIONS [None]
  - NEUTROPENIA [None]
  - RESTLESSNESS [None]
  - RESUSCITATION [None]
  - SEDATION [None]
  - STATUS EPILEPTICUS [None]
  - WITHDRAWAL SYNDROME [None]
